FAERS Safety Report 6644792-X (Version None)
Quarter: 2010Q1

REPORT INFORMATION
  Report Type: 
  Country: None (occurrence: None)
  Receive Date: 20100322
  Receipt Date: 20100312
  Transmission Date: 20100710
  Serious: Yes (Disabling)
  Sender: FDA-Public Use
  Company Number: AU-PFIZER INC-2010016487

PATIENT
  Age: 46 Year
  Sex: Female
  Weight: 56 kg

DRUGS (3)
  1. LIPITOR [Suspect]
     Indication: LIPIDS ABNORMAL
     Dosage: 20 MG, 1X/DAY
     Route: 048
     Dates: start: 20091005, end: 20100111
  2. LIPITOR [Suspect]
     Indication: HYPERCHOLESTEROLAEMIA
  3. TRITACE [Concomitant]
     Indication: HYPERTENSION
     Dosage: 10 MG, 1X/DAY
     Route: 048

REACTIONS (1)
  - BLEPHAROSPASM [None]
